FAERS Safety Report 18380927 (Version 1)
Quarter: 2020Q4

REPORT INFORMATION
  Report Type: Spontaneous
  Country: US (occurrence: US)
  Receive Date: 20201012
  Receipt Date: 20201012
  Transmission Date: 20210114
  Serious: Yes (Other)
  Sender: FDA-Public Use
  Company Number: None

PATIENT
  Age: 8 Month
  Sex: Female
  Weight: 77.11 kg

DRUGS (2)
  1. HUMIRA [Suspect]
     Active Substance: ADALIMUMAB
     Indication: RHEUMATOID ARTHRITIS
     Dosage: FREQUENCY: CADA 14 DIAS?IS THERAPY STILL ON-GOING?: YES
     Route: 058
     Dates: start: 20200724, end: 20200930
  2. HUMIRA  PEN SUBCUT [Concomitant]

REACTIONS (9)
  - Chills [None]
  - Epistaxis [None]
  - Fatigue [None]
  - Arthralgia [None]
  - Haematoma [None]
  - Hyperhidrosis [None]
  - Asthenia [None]
  - Pyrexia [None]
  - Myalgia [None]

NARRATIVE: CASE EVENT DATE: 20201012
